FAERS Safety Report 23845567 (Version 1)
Quarter: 2024Q2

REPORT INFORMATION
  Report Type: Spontaneous
  Country: US (occurrence: US)
  Receive Date: 20240511
  Receipt Date: 20240511
  Transmission Date: 20240716
  Serious: No
  Sender: FDA-Public Use
  Company Number: US-ABBVIE-5751833

PATIENT
  Age: 79 Year
  Sex: Female

DRUGS (1)
  1. ELUXADOLINE [Suspect]
     Active Substance: ELUXADOLINE
     Indication: Diarrhoea
     Route: 048
     Dates: start: 20240501

REACTIONS (4)
  - Feeling abnormal [Not Recovered/Not Resolved]
  - Dizziness [Not Recovered/Not Resolved]
  - Disturbance in attention [Not Recovered/Not Resolved]
  - Pain [Recovered/Resolved]

NARRATIVE: CASE EVENT DATE: 20240501
